FAERS Safety Report 9746401 (Version 3)
Quarter: 2014Q1

REPORT INFORMATION
  Report Type: Spontaneous
  Country: CH (occurrence: CH)
  Receive Date: 20131211
  Receipt Date: 20140119
  Transmission Date: 20141002
  Serious: Yes (Other)
  Sender: FDA-Public Use
  Company Number: CH-009507513-1312CHE003732

PATIENT
  Age: 65 Year
  Sex: Male

DRUGS (8)
  1. REMERON [Suspect]
     Indication: DEPRESSION
     Dosage: 45 MG, QD
     Route: 048
     Dates: start: 2008
  2. REMERON [Suspect]
     Dosage: UNK
     Route: 048
  3. ZYPREXA [Concomitant]
     Indication: DEPRESSION
     Dosage: 2.5 MG, QD
     Route: 048
     Dates: start: 2008, end: 201310
  4. MARCOUMAR [Concomitant]
     Indication: HYPERTENSION
     Dosage: DOSE UNKNOWN
     Route: 048
  5. MARCOUMAR [Concomitant]
     Indication: ATRIAL FIBRILLATION
  6. ATENOLOL [Concomitant]
     Indication: HYPERTENSION
     Dosage: DOSE UNKNOWN
     Route: 048
  7. ATENOLOL [Concomitant]
     Indication: ATRIAL FIBRILLATION
  8. ATACAND [Concomitant]
     Dosage: DOSE UNKNOWN
     Route: 048

REACTIONS (1)
  - Gynaecomastia [Not Recovered/Not Resolved]
